FAERS Safety Report 9161619 (Version 2)
Quarter: 2013Q2

REPORT INFORMATION
  Report Type: Spontaneous
  Country: US (occurrence: US)
  Receive Date: 20130313
  Receipt Date: 20130617
  Transmission Date: 20140414
  Serious: Yes (Life-Threatening, Disabling, Other)
  Sender: FDA-Public Use
  Company Number: US-ELI_LILLY_AND_COMPANY-US201303001983

PATIENT
  Sex: Female
  Weight: 49 kg

DRUGS (16)
  1. EVISTA [Suspect]
     Indication: OSTEOPOROSIS
  2. LAMOTRIGINE [Interacting]
     Dosage: 25 MG, UNK
  3. LAMOTRIGINE [Interacting]
     Dosage: 50 MG, UNK
  4. LAMOTRIGINE [Interacting]
     Dosage: 75 MG, UNK
  5. DEPAKOTE [Concomitant]
     Indication: CONVULSION
  6. CLONIDINE [Concomitant]
  7. BUSPIRONE [Concomitant]
  8. AMITRIPTYLINE [Concomitant]
  9. RANITIDINE [Concomitant]
  10. ASPIRIN [Concomitant]
  11. CYANOCOBALAMIN [Concomitant]
  12. FOLIC ACID [Concomitant]
  13. CALCIUM [Concomitant]
  14. VITAMIN D NOS [Concomitant]
  15. COLECALCIFEROL [Concomitant]
  16. BOTOX [Concomitant]
     Dosage: UNK, UNKNOWN
     Route: 065

REACTIONS (13)
  - Convulsion [Unknown]
  - Oxygen saturation decreased [Unknown]
  - Pruritus generalised [Unknown]
  - Abdominal discomfort [Unknown]
  - Decreased appetite [Unknown]
  - Fear of eating [Unknown]
  - Sleep disorder [Unknown]
  - Diverticulitis [Unknown]
  - Hernia [Unknown]
  - Iron deficiency [Unknown]
  - Drug interaction [Unknown]
  - Dyspnoea [Unknown]
  - Asthenia [Unknown]
